FAERS Safety Report 5717175-4 (Version None)
Quarter: 2008Q2

REPORT INFORMATION
  Report Type: 
  Country: None (occurrence: None)
  Receive Date: 20080424
  Receipt Date: 20080414
  Transmission Date: 20081010
  Serious: Yes (Other)
  Sender: FDA-Public Use
  Company Number: DE-PFIZER INC-2008033581

PATIENT
  Sex: Female

DRUGS (9)
  1. ZELDOX [Suspect]
     Indication: DEPRESSION
     Dosage: DAILY DOSE:240MG
     Route: 048
  2. CYMBALTA [Interacting]
     Indication: DEPRESSION
     Dosage: DAILY DOSE:120MG
     Route: 048
  3. SEROQUEL [Suspect]
     Indication: DEPRESSION
     Dosage: DAILY DOSE:1200MG
     Route: 048
  4. VENLAFAXINE HCL [Interacting]
     Indication: DEPRESSION
     Dosage: DAILY DOSE:300MG
     Route: 048
  5. EUTHYROX [Concomitant]
     Route: 048
  6. BELOC ZOK [Concomitant]
     Route: 048
  7. LAMOTRIGINE [Concomitant]
     Route: 048
  8. ZOPLICONE [Concomitant]
     Route: 048
  9. CHLORALDURAT [Concomitant]
     Route: 048

REACTIONS (2)
  - DRUG INTERACTION [None]
  - TARDIVE DYSKINESIA [None]
